FAERS Safety Report 22078144 (Version 1)
Quarter: 2023Q1

REPORT INFORMATION
  Report Type: Report from Study
  Country: PK (occurrence: PK)
  Receive Date: 20230309
  Receipt Date: 20230309
  Transmission Date: 20230417
  Serious: Yes (Death)
  Sender: FDA-Public Use
  Company Number: PK-002147023-NVSC2023PK053156

PATIENT
  Age: 28 Year
  Sex: Female
  Weight: 56 kg

DRUGS (1)
  1. KISQALI [Suspect]
     Active Substance: RIBOCICLIB
     Indication: Breast cancer
     Dosage: 600 MG (3 TABLETS DAILY)
     Route: 048
     Dates: start: 20210909, end: 20211011

REACTIONS (1)
  - Death [Fatal]

NARRATIVE: CASE EVENT DATE: 20230302
